FAERS Safety Report 23934536 (Version 1)
Quarter: 2024Q2

REPORT INFORMATION
  Report Type: Spontaneous
  Country: US (occurrence: US)
  Receive Date: 20240603
  Receipt Date: 20240603
  Transmission Date: 20240716
  Serious: No
  Sender: FDA-Public Use
  Company Number: US-ABBVIE-5782334

PATIENT
  Age: 39 Year
  Sex: Female

DRUGS (2)
  1. SYNTHROID [Suspect]
     Active Substance: LEVOTHYROXINE SODIUM
     Indication: Product used for unknown indication
     Route: 048
     Dates: start: 2003
  2. SYNTHROID [Suspect]
     Active Substance: LEVOTHYROXINE SODIUM
     Indication: Product used for unknown indication
     Dosage: CURRENT DOSE WAS 88  G
     Route: 048
     Dates: start: 2016

REACTIONS (1)
  - Autoimmune thyroiditis [Unknown]
